FAERS Safety Report 7240996-6 (Version None)
Quarter: 2011Q1

REPORT INFORMATION
  Report Type: 
  Country: None (occurrence: None)
  Receive Date: 20110124
  Receipt Date: 20110113
  Transmission Date: 20110831
  Serious: Yes (Other)
  Sender: FDA-Public Use
  Company Number: US-PURDUE-USA-2011-0062220

PATIENT
  Sex: Female

DRUGS (1)
  1. OXYCONTIN [Suspect]
     Indication: PAIN
     Dosage: 20 MG, BID
     Route: 048
     Dates: start: 20101123, end: 20101220

REACTIONS (6)
  - INFLAMMATION [None]
  - DRUG INEFFECTIVE [None]
  - CRYING [None]
  - PAIN [None]
  - DEPRESSION [None]
  - SUICIDAL IDEATION [None]
